FAERS Safety Report 5935852-7 (Version None)
Quarter: 2008Q4

REPORT INFORMATION
  Report Type: 
  Country: None (occurrence: None)
  Receive Date: 20081030
  Receipt Date: 20081017
  Transmission Date: 20090506
  Serious: Yes (Hospitalization)
  Sender: FDA-Public Use
  Company Number: ES-ELI_LILLY_AND_COMPANY-ES200810004513

PATIENT
  Age: 81 Year
  Sex: Female

DRUGS (6)
  1. FORTEO [Suspect]
     Indication: OSTEOPOROSIS
     Dosage: 20 UG, UNKNOWN
     Route: 058
     Dates: start: 20070401, end: 20080225
  2. ALPRAZOLAM [Concomitant]
     Dosage: UNK, UNKNOWN
     Route: 048
  3. OMEPRAZOLE [Concomitant]
     Dosage: 20 MG, DAILY (1/D)
     Route: 048
  4. CONDROSULF [Concomitant]
     Indication: OSTEOPOROSIS
     Dosage: 400 MG, DAILY (1/D)
     Route: 048
  5. EMCONCOR [Concomitant]
     Indication: HYPERTENSION
     Dosage: 10 MG, 2/D
     Route: 048
  6. HIDROSALURETIL [Concomitant]
     Indication: HYPERTENSION
     Dosage: 50 MG, DAILY (1/D)
     Route: 048

REACTIONS (1)
  - PANCREATITIS ACUTE [None]
